FAERS Safety Report 11581878 (Version 1)
Quarter: 2015Q3

REPORT INFORMATION
  Report Type: Spontaneous
  Country: FR (occurrence: None)
  Receive Date: 20150929
  Receipt Date: 20150929
  Transmission Date: 20151125
  Serious: Yes (Life-Threatening, Hospitalization)
  Sender: FDA-Public Use
  Company Number: FR-2015-3995

PATIENT
  Age: 71 Year
  Sex: Male

DRUGS (8)
  1. COTAREG (HYDROCHLOROTHIAZIDE, VALSARTAN) [Concomitant]
     Active Substance: HYDROCHLOROTHIAZIDE\VALSARTAN
  2. OMEPRAZOLE (OMEPRAZOLE) [Concomitant]
     Active Substance: OMEPRAZOLE
  3. VISKEN (PINDOLOL) [Concomitant]
  4. KARDEGIC (ACETYLSALICYLIC LYSINE) [Concomitant]
  5. SIMVASTATINE (SIMVASTATIN) [Concomitant]
  6. CISPLATIN (CISPLATIN) [Suspect]
     Active Substance: CISPLATIN
     Indication: LUNG ADENOCARCINOMA
     Route: 042
     Dates: start: 20150722, end: 20150729
  7. ONBREZ (INDACATEROL MALEATE) [Concomitant]
  8. NAVELBINE [Suspect]
     Active Substance: VINORELBINE TARTRATE
     Indication: LUNG ADENOCARCINOMA
     Route: 042
     Dates: start: 20150722, end: 20150729

REACTIONS (8)
  - Acute kidney injury [None]
  - Hypokalaemia [None]
  - Disturbance in attention [None]
  - Hyponatraemia [None]
  - Septic shock [None]
  - Agranulocytosis [None]
  - Constipation [None]
  - Dehydration [None]

NARRATIVE: CASE EVENT DATE: 20150805
